FAERS Safety Report 4738840-1 (Version None)
Quarter: 2005Q3

REPORT INFORMATION
  Report Type: 
  Country: None (occurrence: None)
  Receive Date: 20050804
  Receipt Date: 20050719
  Transmission Date: 20060218
  Serious: Yes (Hospitalization)
  Sender: FDA-Public Use
  Company Number: 208108

PATIENT
  Age: 39 Year
  Sex: Female
  Weight: 100 kg

DRUGS (9)
  1. OMALIZUMAB OR PLACEBO (CODE NOT BROKEN) PWDR + SOLVENT, INJECTION SOLN [Suspect]
     Indication: ASTHMA
     Dates: start: 20030314, end: 20030815
  2. SALMETEROL (SALMETEROL) [Concomitant]
  3. SALBUTAMOL (ALBUTEROL SULFATE, ALBUTEROL) [Concomitant]
  4. TEMAZEPAM [Concomitant]
  5. SERETIDE DISKUS (FLUTICASONE PROPIONATE, SALMETEROL XINAFOATE0 [Concomitant]
  6. PREDNISONE [Concomitant]
  7. BACTRIM [Concomitant]
  8. OXAZEPAM [Concomitant]
  9. VENTOLIN (ALBUTEROL, ALBUTEROL SULFATE) [Concomitant]

REACTIONS (12)
  - ARTHRITIS [None]
  - ASTHMA [None]
  - CONDITION AGGRAVATED [None]
  - ERYTHEMA [None]
  - FATIGUE [None]
  - INJECTION SITE ERYTHEMA [None]
  - JOINT SWELLING [None]
  - MALAISE [None]
  - RHINITIS ALLERGIC [None]
  - SARCOIDOSIS [None]
  - SKIN LESION [None]
  - VIRAL INFECTION [None]
